FAERS Safety Report 14564893 (Version 4)
Quarter: 2018Q2

REPORT INFORMATION
  Report Type: Spontaneous
  Country: JP (occurrence: JP)
  Receive Date: 20180223
  Receipt Date: 20180504
  Transmission Date: 20180711
  Serious: Yes (Other)
  Sender: FDA-Public Use
  Company Number: JP-TAKEDA-2018TJP004647

PATIENT
  Age: 69 Year
  Sex: Female
  Weight: 58 kg

DRUGS (5)
  1. MOHRUS [Concomitant]
     Active Substance: KETOPROFEN
     Indication: MUSCULOSKELETAL STIFFNESS
     Dosage: UNK
     Route: 062
     Dates: start: 20111028
  2. APLEWAY [Concomitant]
     Active Substance: TOFOGLIFLOZIN
     Indication: TYPE 2 DIABETES MELLITUS
     Dosage: 20 MG, QD
     Route: 048
     Dates: start: 20171130
  3. GLIMICRON [Concomitant]
     Active Substance: GLICLAZIDE
     Indication: TYPE 2 DIABETES MELLITUS
     Dosage: 20 MG, QD
     Route: 048
     Dates: start: 20180130
  4. INISYNC COMBINATION TABLETS [Suspect]
     Active Substance: ALOGLIPTIN BENZOATE\METFORMIN HYDROCHLORIDE
     Indication: TYPE 2 DIABETES MELLITUS
     Dosage: 1 DF, QD
     Route: 048
     Dates: start: 20180130
  5. ROSUVASTATIN CALCIUM. [Concomitant]
     Active Substance: ROSUVASTATIN CALCIUM
     Indication: HYPERCHOLESTEROLAEMIA
     Dosage: 2.5 MG, QD
     Route: 048
     Dates: start: 20080616

REACTIONS (2)
  - Toxic skin eruption [Recovered/Resolved]
  - Off label use [Unknown]

NARRATIVE: CASE EVENT DATE: 20180130
